FAERS Safety Report 16808823 (Version 1)
Quarter: 2019Q3

REPORT INFORMATION
  Report Type: Spontaneous
  Country: US (occurrence: US)
  Receive Date: 20190916
  Receipt Date: 20190916
  Transmission Date: 20191005
  Serious: Yes (Other)
  Sender: FDA-Public Use
  Company Number: US-STRIDES ARCOLAB LIMITED-2019SP008638

PATIENT
  Age: 70 Year
  Sex: Male

DRUGS (2)
  1. CARBAMAZEPINE. [Concomitant]
     Active Substance: CARBAMAZEPINE
     Indication: SEIZURE
     Dosage: UNK
     Route: 065
  2. ZOLPIDEM [Suspect]
     Active Substance: ZOLPIDEM TARTRATE
     Indication: ABDOMINAL PAIN
     Dosage: 30 PILLS OVER 3 DAYS, HIGH DOSE
     Route: 048

REACTIONS (8)
  - Intentional overdose [Unknown]
  - Intentional product misuse [Unknown]
  - Off label use [Unknown]
  - Mesenteric arteriosclerosis [Unknown]
  - Arteriosclerosis [Unknown]
  - Cholelithiasis [Unknown]
  - Inappropriate antidiuretic hormone secretion [Unknown]
  - Hyponatraemia [Recovered/Resolved]
